FAERS Safety Report 11448397 (Version 1)
Quarter: 2015Q3

REPORT INFORMATION
  Report Type: Spontaneous
  Country: US (occurrence: US)
  Receive Date: 20150831
  Receipt Date: 20150831
  Transmission Date: 20151125
  Serious: No
  Sender: FDA-Public Use
  Company Number: US-ELI_LILLY_AND_COMPANY-US200907001514

PATIENT
  Sex: Female

DRUGS (2)
  1. AXERT [Concomitant]
     Active Substance: ALMOTRIPTAN MALATE
  2. CYMBALTA [Suspect]
     Active Substance: DULOXETINE HYDROCHLORIDE
     Indication: PAIN
     Dosage: 20 MG, UNK

REACTIONS (7)
  - Dizziness [Unknown]
  - Hyperhidrosis [Unknown]
  - Fatigue [Unknown]
  - Thinking abnormal [Unknown]
  - Muscle twitching [Unknown]
  - Intentional product misuse [Unknown]
  - Abdominal discomfort [Unknown]
